FAERS Safety Report 4520061-9 (Version None)
Quarter: 2004Q4

REPORT INFORMATION
  Report Type: 
  Country: None (occurrence: None)
  Receive Date: 20041202
  Receipt Date: 20041202
  Transmission Date: 20050328
  Serious: Yes (Death)
  Sender: FDA-Public Use
  Company Number: None

PATIENT
  Age: 48 Year
  Sex: Male
  Weight: 107.5025 kg

DRUGS (1)
  1. GEMZAR [Suspect]
     Indication: PANCREATIC CARCINOMA METASTATIC
     Dosage: 1500MG/M2 3 WKS ON 1 WK OFF INTRAVENOUS
     Route: 042
     Dates: start: 20031009, end: 20040528

REACTIONS (7)
  - ABSCESS [None]
  - CONDITION AGGRAVATED [None]
  - DISEASE PROGRESSION [None]
  - EROSIVE DUODENITIS [None]
  - FLATULENCE [None]
  - PAIN [None]
  - PANCREATIC MASS [None]
